FAERS Safety Report 20905934 (Version 1)
Quarter: 2022Q2

REPORT INFORMATION
  Report Type: Spontaneous
  Country: JP (occurrence: JP)
  Receive Date: 20220602
  Receipt Date: 20220602
  Transmission Date: 20220720
  Serious: No
  Sender: FDA-Public Use
  Company Number: JP-MSD-M2022-20263

PATIENT
  Age: 46 Year
  Sex: Female

DRUGS (2)
  1. MOLNUPIRAVIR [Suspect]
     Active Substance: MOLNUPIRAVIR
     Indication: COVID-19 treatment
     Dosage: 400 MILLIGRAM, QD
     Route: 048
     Dates: start: 20220519, end: 20220519
  2. NEORAL [Concomitant]
     Active Substance: CYCLOSPORINE
     Indication: Glomerulonephritis membranous
     Dosage: UNK
     Route: 048

REACTIONS (4)
  - Headache [Recovered/Resolved]
  - Nausea [Recovered/Resolved]
  - Dizziness [Recovered/Resolved]
  - Underdose [Unknown]

NARRATIVE: CASE EVENT DATE: 20220501
